FAERS Safety Report 26219058 (Version 1)
Quarter: 2025Q4

REPORT INFORMATION
  Report Type: Spontaneous
  Country: US (occurrence: US)
  Receive Date: 20251231
  Receipt Date: 20251231
  Transmission Date: 20260118
  Serious: No
  Sender: MYLAN
  Company Number: US-MYLANLABS-2025M1110997

PATIENT
  Age: 73 Year
  Sex: Male

DRUGS (2)
  1. TOBI PODHALER [Suspect]
     Active Substance: TOBRAMYCIN
     Indication: Chronic obstructive pulmonary disease
     Dosage: 28 MILLIGRAM, BID (TAKEN 4 CAPSULES, TWICE A DAY)
     Dates: start: 20251212
  2. TOBI PODHALER [Suspect]
     Active Substance: TOBRAMYCIN
     Indication: Lung neoplasm malignant

REACTIONS (2)
  - Product use in unapproved indication [Unknown]
  - Product packaging difficult to open [Unknown]

NARRATIVE: CASE EVENT DATE: 20251201
